FAERS Safety Report 7667856-0 (Version None)
Quarter: 2011Q3

REPORT INFORMATION
  Report Type: 
  Country: None (occurrence: None)
  Receive Date: 20110806
  Receipt Date: 20110613
  Transmission Date: 20111222
  Serious: No
  Sender: FDA-Public Use
  Company Number: US-ABBOTT-11P-163-0732067-00

PATIENT
  Weight: 93.07 kg

DRUGS (6)
  1. NIASPAN [Suspect]
     Route: 048
     Dates: start: 20100101, end: 20110201
  2. NIASPAN [Suspect]
     Indication: BLOOD CHOLESTEROL INCREASED
     Route: 048
     Dates: start: 20110610
  3. VITAMIN D [Concomitant]
     Indication: VITAMIN SUPPLEMENTATION
  4. FISH OIL [Concomitant]
     Indication: VITAMIN SUPPLEMENTATION
  5. METFORMIN HCL [Concomitant]
     Indication: DIABETES MELLITUS
  6. FERROUS SULFATE TAB [Concomitant]
     Indication: MINERAL SUPPLEMENTATION

REACTIONS (3)
  - FEELING HOT [None]
  - FLUSHING [None]
  - PRURITUS [None]
